FAERS Safety Report 5166156-0 (Version None)
Quarter: 2006Q4

REPORT INFORMATION
  Report Type: 
  Country: None (occurrence: None)
  Receive Date: 20061124
  Receipt Date: 20061113
  Transmission Date: 20070319
  Serious: Yes (Hospitalization)
  Sender: FDA-Public Use
  Company Number: 200610368BBE

PATIENT
  Age: 49 Year
  Sex: Female

DRUGS (5)
  1. GAMUNEX [Suspect]
     Indication: RELAPSING-REMITTING MULTIPLE SCLEROSIS
     Dates: start: 20061030
  2. AMINOPYRIDINE [Concomitant]
  3. NALTREXONE [Concomitant]
  4. LOMOTIL [DIPHENOXYLATE HYDROCHLORIDE] [Concomitant]
  5. TEMAZEPAM [Concomitant]

REACTIONS (5)
  - HAEMATURIA [None]
  - HAEMOGLOBIN DECREASED [None]
  - HAEMOLYSIS [None]
  - HYPOKALAEMIA [None]
  - INFUSION RELATED REACTION [None]
